FAERS Safety Report 14389611 (Version 3)
Quarter: 2018Q4

REPORT INFORMATION
  Report Type: Spontaneous
  Country: US (occurrence: US)
  Receive Date: 20180115
  Receipt Date: 20181205
  Transmission Date: 20190204
  Serious: Yes (Other)
  Sender: FDA-Public Use
  Company Number: US-SA-2017SA243956

PATIENT
  Age: 33 Year
  Sex: Female
  Weight: 70.3 kg

DRUGS (7)
  1. PHENERGAN [PROMETHAZINE HYDROCHLORIDE] [Concomitant]
  2. DECADRON [Concomitant]
     Active Substance: DEXAMETHASONE
  3. PERCOCET [OXYCODONE HYDROCHLORIDE;OXYCODONE TEREPHTHALATE;PARACETAMOL] [Concomitant]
     Active Substance: ACETAMINOPHEN\OXYCODONE HYDROCHLORIDE\OXYCODONE TEREPHTHALATE
  4. DOCETAXEL. [Suspect]
     Active Substance: DOCETAXEL
     Dosage: 148 UNK, Q3W
     Route: 042
     Dates: start: 20130423, end: 20130423
  5. ATIVAN [Concomitant]
     Active Substance: LORAZEPAM
  6. DOCETAXEL. [Suspect]
     Active Substance: DOCETAXEL
     Indication: BREAST CANCER
     Dosage: 148 UNK, Q3W
     Route: 042
     Dates: start: 20130108, end: 20130108
  7. WARFARIN [Concomitant]
     Active Substance: WARFARIN

REACTIONS (2)
  - Psychological trauma [Unknown]
  - Alopecia [Recovering/Resolving]

NARRATIVE: CASE EVENT DATE: 201301
